FAERS Safety Report 5332077-3 (Version None)
Quarter: 2007Q2

REPORT INFORMATION
  Report Type: 
  Country: None (occurrence: None)
  Receive Date: 20070523
  Receipt Date: 20070515
  Transmission Date: 20071010
  Serious: Yes (Hospitalization, Other)
  Sender: FDA-Public Use
  Company Number: DK-AVENTIS-200712358EU

PATIENT
  Age: 46 Year
  Sex: Female

DRUGS (19)
  1. ENOXAPARIN SODIUM [Suspect]
     Route: 058
     Dates: start: 20070114, end: 20070128
  2. ORABET                             /00082702/ [Concomitant]
     Dates: start: 20060501, end: 20070114
  3. ORABET                             /00082702/ [Concomitant]
     Dates: start: 20070221
  4. ORABET                             /00082702/ [Concomitant]
     Dates: start: 20070125, end: 20070219
  5. PAMOL                              /00020001/ [Concomitant]
     Dates: start: 20000101, end: 20070225
  6. PAMOL                              /00020001/ [Concomitant]
     Dates: start: 20070115, end: 20070115
  7. PAMOL                              /00020001/ [Concomitant]
     Dates: start: 20070116, end: 20070125
  8. MANDOLGIN [Concomitant]
     Dates: start: 20010101, end: 20070114
  9. MANDOLGIN [Concomitant]
     Dates: start: 20070125, end: 20070222
  10. PANTOLOC                           /01263201/ [Concomitant]
     Dates: start: 20061101, end: 20070114
  11. PANTOLOC                           /01263201/ [Concomitant]
     Dates: start: 20070127
  12. TIMOSAN [Concomitant]
     Dates: start: 20061001, end: 20070117
  13. IBUMETIN [Concomitant]
     Dates: start: 20061101, end: 20061228
  14. IBUMETIN [Concomitant]
     Dates: start: 20070128, end: 20070225
  15. SELEXID                            /00445302/ [Concomitant]
     Indication: CYSTITIS
     Dates: start: 20070112, end: 20070117
  16. MAGNESIUM SULFATE [Concomitant]
     Indication: CONSTIPATION PROPHYLAXIS
     Dates: start: 20070115, end: 20070119
  17. CELEBRA [Concomitant]
     Dates: start: 20070115, end: 20070115
  18. CELEBRA [Concomitant]
     Dates: start: 20070116, end: 20070128
  19. BRENTAN                            /00310801/ [Concomitant]
     Dates: start: 20070121, end: 20070204

REACTIONS (2)
  - WOUND HAEMORRHAGE [None]
  - WOUND SECRETION [None]
